FAERS Safety Report 25861227 (Version 1)
Quarter: 2025Q3

REPORT INFORMATION
  Report Type: Report from Study
  Country: US (occurrence: US)
  Receive Date: 20250929
  Receipt Date: 20250929
  Transmission Date: 20251021
  Serious: Yes (Other)
  Sender: UCB
  Company Number: US-UCBSA-2025034800

PATIENT
  Sex: Female

DRUGS (5)
  1. BIMEKIZUMAB [Suspect]
     Active Substance: BIMEKIZUMAB
     Indication: Psoriasis
     Dosage: 320 MILLIGRAM, EV 4 WEEKS
     Route: 058
     Dates: start: 20250506
  2. BIMEKIZUMAB [Suspect]
     Active Substance: BIMEKIZUMAB
     Indication: Psoriatic arthropathy
  3. BIMEKIZUMAB [Suspect]
     Active Substance: BIMEKIZUMAB
     Indication: Ankylosing spondylitis
  4. ELIQUIS [Concomitant]
     Active Substance: APIXABAN
     Indication: Product used for unknown indication
  5. LIPITOR [Concomitant]
     Active Substance: ATORVASTATIN CALCIUM
     Indication: Product used for unknown indication

REACTIONS (12)
  - Pain [Not Recovered/Not Resolved]
  - Endoscopic retrograde cholangiopancreatography [Recovering/Resolving]
  - Stent placement [Not Recovered/Not Resolved]
  - Atrial fibrillation [Not Recovered/Not Resolved]
  - Atrial flutter [Not Recovered/Not Resolved]
  - Cardiac failure congestive [Not Recovered/Not Resolved]
  - Breast disorder [Unknown]
  - Psoriasis [Not Recovered/Not Resolved]
  - Fatigue [Not Recovered/Not Resolved]
  - Arthralgia [Not Recovered/Not Resolved]
  - Cyst [Not Recovered/Not Resolved]
  - Therapeutic response unexpected [Unknown]

NARRATIVE: CASE EVENT DATE: 20250101
